FAERS Safety Report 5758290-9 (Version None)
Quarter: 2008Q2

REPORT INFORMATION
  Report Type: 
  Country: None (occurrence: None)
  Receive Date: 20080604
  Receipt Date: 20080526
  Transmission Date: 20081010
  Serious: Yes (Other)
  Sender: FDA-Public Use
  Company Number: NO-JNJFOC-20080505399

PATIENT
  Sex: Female

DRUGS (2)
  1. HALDOL [Suspect]
     Indication: BIPOLAR I DISORDER
     Route: 048
  2. NOZINAN [Suspect]
     Indication: BIPOLAR I DISORDER

REACTIONS (1)
  - TOOTH LOSS [None]
